FAERS Safety Report 13278593 (Version 2)
Quarter: 2017Q1

REPORT INFORMATION
  Report Type: Report from Study
  Country: JP (occurrence: JP)
  Receive Date: 20170228
  Receipt Date: 20170330
  Transmission Date: 20170428
  Serious: Yes (Hospitalization)
  Sender: FDA-Public Use
  Company Number: JP-EISAI MEDICAL RESEARCH-EC-2017-025229

PATIENT
  Age: 68 Year
  Sex: Female
  Weight: 57 kg

DRUGS (5)
  1. LEVOTHYROXINE. [Concomitant]
     Active Substance: LEVOTHYROXINE
  2. LENVIMA [Suspect]
     Active Substance: LENVATINIB
     Route: 048
     Dates: start: 20150908, end: 20150910
  3. CALCIUM LACTATE AND PREPARATIONS [Concomitant]
  4. LENVIMA [Suspect]
     Active Substance: LENVATINIB
     Indication: PAPILLARY THYROID CANCER
     Route: 048
     Dates: start: 20150818, end: 20150827
  5. CALCITAMIN [Concomitant]
     Active Substance: MINERALS\VITAMINS

REACTIONS (2)
  - Atrial fibrillation [Recovering/Resolving]
  - Atrial thrombosis [Recovering/Resolving]

NARRATIVE: CASE EVENT DATE: 20150916
